FAERS Safety Report 5742020-0 (Version None)
Quarter: 2008Q2

REPORT INFORMATION
  Report Type: 
  Country: None (occurrence: None)
  Receive Date: 20080519
  Receipt Date: 20030325
  Transmission Date: 20081010
  Serious: No
  Sender: FDA-Public Use
  Company Number: BR-MERCK-0303BRA00082

PATIENT
  Age: 33 Year
  Sex: Male

DRUGS (1)
  1. PROPECIA [Suspect]
     Indication: ALOPECIA
     Route: 048

REACTIONS (1)
  - INFERTILITY MALE [None]
